FAERS Safety Report 23239458 (Version 1)
Quarter: 2023Q4

REPORT INFORMATION
  Report Type: Spontaneous
  Country: BR (occurrence: None)
  Receive Date: 20231129
  Receipt Date: 20231129
  Transmission Date: 20240110
  Serious: Yes (Other)
  Sender: FDA-Public Use
  Company Number: 2023A269178

PATIENT
  Age: 55 Year
  Sex: Female

DRUGS (4)
  1. OLAPARIB [Suspect]
     Active Substance: OLAPARIB
     Indication: Ovarian cancer metastatic
     Dosage: 300 MG (TWO 150 MG TABLETS) ADMINISTERED TWICE DAILY (TOTAL DAILY DOSE OF 600 MG)
     Route: 048
     Dates: start: 202009, end: 2021
  2. OLAPARIB [Suspect]
     Active Substance: OLAPARIB
     Indication: Ovarian cancer stage IV
     Dosage: 300 MG (TWO 150 MG TABLETS) ADMINISTERED TWICE DAILY (TOTAL DAILY DOSE OF 600 MG)
     Route: 048
     Dates: start: 202009, end: 2021
  3. OLAPARIB [Suspect]
     Active Substance: OLAPARIB
     Indication: Ovarian cancer metastatic
  4. OLAPARIB [Suspect]
     Active Substance: OLAPARIB
     Indication: Ovarian cancer stage IV

REACTIONS (10)
  - Ovarian cancer recurrent [Unknown]
  - Pancreatic carcinoma [Unknown]
  - Malignant neoplasm progression [Unknown]
  - Radiotherapy [Unknown]
  - Glomerular filtration rate decreased [Unknown]
  - Hepatic mass [Unknown]
  - Dehydration [Unknown]
  - Myalgia [Unknown]
  - Pain [Unknown]
  - Carbohydrate antigen 125 increased [Unknown]

NARRATIVE: CASE EVENT DATE: 20210101
